FAERS Safety Report 22768675 (Version 2)
Quarter: 2023Q4

REPORT INFORMATION
  Report Type: Spontaneous
  Country: US (occurrence: US)
  Receive Date: 20230731
  Receipt Date: 20231020
  Transmission Date: 20240109
  Serious: Yes (Hospitalization, Other)
  Sender: FDA-Public Use
  Company Number: US-BAYER-2023A106707

PATIENT
  Age: 19 Year
  Sex: Male

DRUGS (1)
  1. DEXTROMETHORPHAN HYDROBROMIDE\GUAIFENESIN [Suspect]
     Active Substance: DEXTROMETHORPHAN HYDROBROMIDE\GUAIFENESIN
     Dosage: UNK
     Dates: start: 20221230, end: 20221230

REACTIONS (4)
  - Acute kidney injury [Recovered/Resolved]
  - Ureteric obstruction [None]
  - Nephrolithiasis [Recovering/Resolving]
  - Intentional overdose [None]

NARRATIVE: CASE EVENT DATE: 20221230
